FAERS Safety Report 8850574 (Version 2)
Quarter: 2012Q4

REPORT INFORMATION
  Report Type: 
  Country: US (occurrence: US)
  Receive Date: 20121019
  Receipt Date: 20121031
  Transmission Date: 20130627
  Serious: Yes (Other)
  Sender: FDA-Public Use
  Company Number: US-ASTRAZENECA-2012SE78280

PATIENT
  Age: 58 Year
  Sex: Female

DRUGS (3)
  1. SYMBICORT PMDI [Suspect]
     Dosage: UNKNOWN
     Route: 055
  2. ZYRTEC [Concomitant]
     Indication: RHINITIS ALLERGIC
  3. NASONEX [Concomitant]
     Indication: RHINITIS ALLERGIC

REACTIONS (11)
  - Laryngeal cancer stage IV [Unknown]
  - Throat cancer [Recovered/Resolved]
  - Adverse event [Unknown]
  - Dysphonia [Unknown]
  - Herpes zoster [Unknown]
  - Rhinitis allergic [Unknown]
  - Bronchial hyperreactivity [Not Recovered/Not Resolved]
  - Upper-airway cough syndrome [Not Recovered/Not Resolved]
  - Reflux laryngitis [Unknown]
  - Impaired work ability [Unknown]
  - Cough [Not Recovered/Not Resolved]
